FAERS Safety Report 9174241 (Version 1)
Quarter: 2013Q1

REPORT INFORMATION
  Report Type: Spontaneous
  Country: US (occurrence: US)
  Receive Date: 20130320
  Receipt Date: 20130320
  Transmission Date: 20140127
  Serious: Yes (Hospitalization, Other)
  Sender: FDA-Public Use
  Company Number: PHEH2013US006077

PATIENT
  Sex: Female

DRUGS (1)
  1. RECLAST [Suspect]
     Dosage: UNK
     Route: 042

REACTIONS (10)
  - Cardiac disorder [Unknown]
  - Chest pain [Unknown]
  - Neoplasm malignant [Unknown]
  - Vision blurred [Unknown]
  - Toothache [Unknown]
  - Oesophagitis [Unknown]
  - Malaise [Unknown]
  - Dizziness [Unknown]
  - Pyrexia [Unknown]
  - Pain in jaw [Unknown]
